FAERS Safety Report 13578652 (Version 1)
Quarter: 2017Q2

REPORT INFORMATION
  Report Type: Report from Study
  Country: US (occurrence: BR)
  Receive Date: 20170524
  Receipt Date: 20170524
  Transmission Date: 20170830
  Serious: Yes (Life-Threatening, Hospitalization)
  Sender: FDA-Public Use
  Company Number: US-SUNOVION-2017SUN002203

PATIENT
  Sex: Male
  Weight: 91 kg

DRUGS (1)
  1. INDACATEROL AND GLYCOPYRROLATE [Suspect]
     Active Substance: GLYCOPYRROLATE\INDACATEROL MALEATE
     Indication: CHRONIC OBSTRUCTIVE PULMONARY DISEASE
     Dosage: 1 DF (110/50 UG), QD
     Route: 055

REACTIONS (5)
  - Apparent death [Recovering/Resolving]
  - Wrong technique in product usage process [Unknown]
  - Acute myocardial infarction [Recovering/Resolving]
  - Incorrect dose administered [Unknown]
  - Malaise [Recovering/Resolving]
